FAERS Safety Report 11451567 (Version 3)
Quarter: 2015Q4

REPORT INFORMATION
  Report Type: Report from Study
  Country: US (occurrence: US)
  Receive Date: 20150903
  Receipt Date: 20151104
  Transmission Date: 20160304
  Serious: Yes (Other)
  Sender: FDA-Public Use
  Company Number: US-AMGEN-USASL2015089403

PATIENT
  Age: 38 Year
  Sex: Female

DRUGS (5)
  1. ALBUTEROL                          /00139501/ [Concomitant]
     Active Substance: ALBUTEROL
     Indication: ASTHMA
     Dosage: UNK UNK, AS NECESSARY
  2. PREDNISONE. [Concomitant]
     Active Substance: PREDNISONE
     Indication: ASTHMA
     Dosage: 10 MG, UNK
  3. ADVAIR HFA [Concomitant]
     Active Substance: FLUTICASONE PROPIONATE\SALMETEROL XINAFOATE
     Indication: ASTHMA
     Dosage: 500 UNK, BID
  4. ENBREL [Suspect]
     Active Substance: ETANERCEPT
     Indication: RHEUMATOID ARTHRITIS
     Dosage: 50 MG, QWK
     Route: 065
     Dates: start: 20150827
  5. ZYRTEC [Concomitant]
     Active Substance: CETIRIZINE HYDROCHLORIDE
     Dosage: UNK

REACTIONS (17)
  - Nervousness [Unknown]
  - Injection site reaction [Not Recovered/Not Resolved]
  - Lung disorder [Unknown]
  - Chronic sinusitis [Unknown]
  - Dizziness [Unknown]
  - Injection site pruritus [Not Recovered/Not Resolved]
  - Hypophagia [Unknown]
  - Productive cough [Unknown]
  - Irritability [Unknown]
  - Injection site erythema [Not Recovered/Not Resolved]
  - Dysphagia [Unknown]
  - Injection site swelling [Not Recovered/Not Resolved]
  - Injection site bruising [Unknown]
  - Wheezing [Unknown]
  - Injection site warmth [Not Recovered/Not Resolved]
  - Impatience [Unknown]
  - Injection site urticaria [Unknown]

NARRATIVE: CASE EVENT DATE: 2015
